FAERS Safety Report 4688211-1 (Version None)
Quarter: 2005Q2

REPORT INFORMATION
  Report Type: 
  Country: None (occurrence: None)
  Receive Date: 20050610
  Receipt Date: 20050602
  Transmission Date: 20051028
  Serious: Yes (Death)
  Sender: FDA-Public Use
  Company Number: AU-ABBOTT-05P-008-0302257-00

PATIENT
  Sex: Female

DRUGS (8)
  1. EPILIM [Suspect]
     Indication: COMPLETED SUICIDE
     Route: 065
  2. BUPROPION HYDROCHLORIDE [Suspect]
     Indication: COMPLETED SUICIDE
     Route: 065
  3. TEMAZEPAM [Suspect]
     Indication: COMPLETED SUICIDE
     Route: 065
  4. DIAZEPAM [Suspect]
     Indication: COMPLETED SUICIDE
  5. IPRATROPIUM BROMIDE [Suspect]
     Indication: COMPLETED SUICIDE
     Route: 065
  6. FLUTICASONE PROPIONATE [Suspect]
     Indication: COMPLETED SUICIDE
     Route: 065
  7. HYDROCHLOROTHIAZIDE [Suspect]
     Indication: COMPLETED SUICIDE
     Route: 065
  8. SALBUTAMOL [Suspect]
     Indication: COMPLETED SUICIDE
     Route: 065

REACTIONS (3)
  - COMPLETED SUICIDE [None]
  - DEPRESSION [None]
  - OVERDOSE [None]
